FAERS Safety Report 20242898 (Version 1)
Quarter: 2021Q4

REPORT INFORMATION
  Report Type: Report from Study
  Country: NL (occurrence: NL)
  Receive Date: 20211228
  Receipt Date: 20211228
  Transmission Date: 20220303
  Serious: Yes (Hospitalization, Congenital Anomaly, Other)
  Sender: FDA-Public Use
  Company Number: NL-AstraZeneca-2021A850667

PATIENT
  Sex: Male
  Weight: 5 kg

DRUGS (3)
  1. SYNAGIS [Suspect]
     Active Substance: PALIVIZUMAB
     Indication: Oxygen saturation decreased
     Dosage: UNKNOWN
     Route: 030
  2. SYNAGIS [Suspect]
     Active Substance: PALIVIZUMAB
     Indication: Oxygen saturation decreased
     Dosage: UNKNOWN
     Route: 030
  3. SYNAGIS [Suspect]
     Active Substance: PALIVIZUMAB
     Indication: Oxygen saturation decreased
     Route: 030
     Dates: start: 20211130

REACTIONS (2)
  - Oxygen saturation decreased [Not Recovered/Not Resolved]
  - Cardiac septal defect [Not Recovered/Not Resolved]
